FAERS Safety Report 11720917 (Version 2)
Quarter: 2016Q3

REPORT INFORMATION
  Report Type: Spontaneous
  Country: US (occurrence: US)
  Receive Date: 20151110
  Receipt Date: 20160809
  Transmission Date: 20161109
  Serious: No
  Sender: FDA-Public Use
  Company Number: US-SA-2015SA139816

PATIENT
  Age: 44 Year
  Sex: Male
  Weight: 112 kg

DRUGS (2)
  1. ALIROCUMAB PREFILLED PEN [Concomitant]
     Active Substance: ALIROCUMAB
     Dates: start: 20150812, end: 20150813
  2. PRALUENT [Suspect]
     Active Substance: ALIROCUMAB
     Route: 065
     Dates: start: 20150812, end: 20150813

REACTIONS (2)
  - Dizziness [Recovered/Resolved]
  - Hangover [Recovered/Resolved]

NARRATIVE: CASE EVENT DATE: 20150813
